FAERS Safety Report 14581948 (Version 1)
Quarter: 2018Q1

REPORT INFORMATION
  Report Type: Spontaneous
  Country: US (occurrence: US)
  Receive Date: 20180228
  Receipt Date: 20180228
  Transmission Date: 20180509
  Serious: Yes (Hospitalization)
  Sender: FDA-Public Use
  Company Number: US-TEVA-2018-US-862622

PATIENT
  Age: 25 Year

DRUGS (2)
  1. CLOZAPINE. [Suspect]
     Active Substance: CLOZAPINE
     Dosage: 100 MILLIGRAM DAILY; 42 TABLETSX100MG OF CLOZAPINE
     Route: 065
     Dates: start: 20180103, end: 20180103
  2. LITHIUM. [Suspect]
     Active Substance: LITHIUM
     Dosage: 300 MILLIGRAM DAILY;
     Route: 065
     Dates: start: 20180103, end: 20180103

REACTIONS (4)
  - White blood cell count increased [Recovered/Resolved]
  - Heart rate increased [Recovered/Resolved]
  - Antipsychotic drug level increased [Recovered/Resolved]
  - Encephalopathy [Recovered/Resolved]

NARRATIVE: CASE EVENT DATE: 20180103
